FAERS Safety Report 9868995 (Version 2)
Quarter: 2014Q1

REPORT INFORMATION
  Report Type: Spontaneous
  Country: US (occurrence: US)
  Receive Date: 20140205
  Receipt Date: 20140211
  Transmission Date: 20141002
  Serious: Yes (Death)
  Sender: FDA-Public Use
  Company Number: US-009507513-1401USA013912

PATIENT
  Age: 38 Year
  Sex: Male

DRUGS (5)
  1. ENALAPRIL MALEATE [Suspect]
     Route: 048
  2. AMITRIPTYLINE HYDROCHLORIDE [Suspect]
     Route: 048
  3. VENLAFAXINE HYDROCHLORIDE [Suspect]
     Route: 048
  4. PROCET [Suspect]
     Route: 048
  5. TEMAZEPAM [Suspect]
     Route: 048

REACTIONS (1)
  - Completed suicide [Fatal]
